FAERS Safety Report 8621094 (Version 4)
Quarter: 2012Q4

REPORT INFORMATION
  Report Type: Spontaneous
  Country: US (occurrence: None)
  Receive Date: 20120606
  Receipt Date: 20120914
  Transmission Date: 20130627
  Serious: Yes (Other)
  Sender: FDA-Public Use
  Company Number: 1293755

PATIENT
  Age: 19 Year
  Sex: Female
  Weight: 52.27 kg

DRUGS (3)
  1. SODIUM BICARBONATE [Suspect]
     Indication: ANAESTHESIA
     Dosage: 5 CC, X1 DOSE, INTRAVENOUS (NOT OTHERWISE SPECIFIED)
     Dates: start: 20120510, end: 20120510
  2. SODIUM CHLORIDE [Suspect]
     Indication: ANAESTHESIA
     Dosage: 25 CC, X1 DOSE, INTRAVENOUS (NOT OTHERWISE SPECIFIED)
     Dates: start: 20120510, end: 20120510
  3. LIDOCAINE HYDROCHLORIDE [Suspect]
     Indication: ANAESTHESIA
     Dosage: 20 CC, X1 DOSE, INTRAVENOUS (NOT OTHERWISE SPECIFIED)
     Dates: start: 20120510, end: 20120510

REACTIONS (7)
  - SKIN LESION [None]
  - ERYTHEMA [None]
  - SKIN DISCOLOURATION [None]
  - BLISTER [None]
  - JOINT SWELLING [None]
  - OEDEMA PERIPHERAL [None]
  - HYPERSENSITIVITY [None]
